FAERS Safety Report 14154661 (Version 1)
Quarter: 2017Q4

REPORT INFORMATION
  Report Type: Spontaneous
  Country: US (occurrence: US)
  Receive Date: 20171102
  Receipt Date: 20171102
  Transmission Date: 20180321
  Serious: No
  Sender: FDA-Public Use
  Company Number: US-TEIKOKU PHARMA USA-TPU2017-00676

PATIENT
  Sex: Female
  Weight: 64.47 kg

DRUGS (20)
  1. MAGNESIUM OXIDE. [Concomitant]
     Active Substance: MAGNESIUM OXIDE
  2. VITAMIN D [Concomitant]
     Active Substance: CHOLECALCIFEROL
  3. VITAMIN A [Concomitant]
     Active Substance: VITAMIN A
  4. ZINC. [Concomitant]
     Active Substance: ZINC
  5. SYNTHROID [Concomitant]
     Active Substance: LEVOTHYROXINE SODIUM
     Indication: HYPOTHYROIDISM
  6. IMATREX [Concomitant]
     Indication: MIGRAINE
  7. DEPAKOTE [Concomitant]
     Active Substance: DIVALPROEX SODIUM
     Indication: MIGRAINE
  8. TOPAMAX [Concomitant]
     Active Substance: TOPIRAMATE
     Indication: MIGRAINE
  9. POTASSIUM [Concomitant]
     Active Substance: POTASSIUM
     Indication: BLOOD POTASSIUM DECREASED
  10. FIORINAL [Concomitant]
     Active Substance: ASPIRIN\BUTALBITAL\CAFFEINE
     Indication: MIGRAINE
     Dosage: NO DOSAGE FOR THAT. ONE Q6 HOURS
  11. MSM [Concomitant]
     Active Substance: DIMETHYL SULFONE
  12. LIDOCAINE PATCH [Suspect]
     Active Substance: LIDOCAINE
     Indication: NEUROPATHY PERIPHERAL
     Dosage: 3 PATCHES A DAY, WHEREEVER I NEEDED IT, 12 HOURS ON 12 HOURS OFF
  13. PHENERGAN [Concomitant]
     Active Substance: PROMETHAZINE HYDROCHLORIDE
     Indication: NAUSEA
  14. CALCIUM [Concomitant]
     Active Substance: CALCIUM
     Indication: OSTEOPOROSIS
  15. TRAMADOL HCL AND ACETAMINOPHEN [Concomitant]
     Active Substance: ACETAMINOPHEN\TRAMADOL
     Indication: NEURALGIA
  16. SIMVASTATIN. [Concomitant]
     Active Substance: SIMVASTATIN
     Indication: BLOOD CHOLESTEROL INCREASED
  17. VITAMIN C [Concomitant]
     Active Substance: ASCORBIC ACID
  18. FISH OIL [Suspect]
     Active Substance: FISH OIL
     Dates: start: 201710
  19. VICODIN [Concomitant]
     Active Substance: ACETAMINOPHEN\HYDROCODONE BITARTRATE
     Indication: PAIN
     Dosage: 10/325 AS NEEDED Q 6 HOURS
  20. TIZANIDINE HCL [Concomitant]
     Active Substance: TIZANIDINE HYDROCHLORIDE
     Indication: MUSCLE RELAXANT THERAPY
     Dosage: 4MG TABLET THAT I ^USE A CHIP OF IT^, ITS AN EIGTH OF A TABLET

REACTIONS (8)
  - Malaise [Unknown]
  - Weight increased [Not Recovered/Not Resolved]
  - Multiple use of single-use product [Unknown]
  - Body height decreased [Not Recovered/Not Resolved]
  - Anxiety [Unknown]
  - Addison^s disease [Unknown]
  - Pain in extremity [Not Recovered/Not Resolved]
  - Incorrect drug administration duration [Unknown]
